FAERS Safety Report 4603062-1 (Version None)
Quarter: 2005Q1

REPORT INFORMATION
  Report Type: 
  Country: None (occurrence: None)
  Receive Date: 20050307
  Receipt Date: 20050218
  Transmission Date: 20050727
  Serious: Yes (Hospitalization)
  Sender: FDA-Public Use
  Company Number: 211597

PATIENT
  Age: 61 Year
  Sex: Female
  Weight: 79 kg

DRUGS (4)
  1. HERCEPTIN [Suspect]
     Indication: BREAST CANCER METASTATIC
     Dosage: 316 MG, SINGLE, INTRAVENOUS
     Route: 042
     Dates: start: 20041122, end: 20041122
  2. CYCLOPHOSPHAMIDE [Suspect]
     Indication: BREAST CANCER METASTATIC
     Dosage: 1140 MG, Q4W
     Dates: start: 20041122
  3. METHOTREXATE [Suspect]
     Indication: BREAST CANCER METASTATIC
     Dosage: 76 MG Q4W, INTRAVENOUS
     Route: 042
     Dates: start: 20041122
  4. FLUOROURACIL [Suspect]
     Indication: BREAST CANCER METASTATIC
     Dosage: 1140 MG Q4W, INTRAVENOUS
     Route: 042
     Dates: start: 20041122

REACTIONS (2)
  - NEUTROPENIA [None]
  - PYREXIA [None]
